FAERS Safety Report 19459979 (Version 2)
Quarter: 2022Q1

REPORT INFORMATION
  Report Type: Spontaneous
  Country: GB (occurrence: GB)
  Receive Date: 20210625
  Receipt Date: 20220325
  Transmission Date: 20220424
  Serious: Yes (Life-Threatening, Disabling, Other)
  Sender: FDA-Public Use
  Company Number: GB-MHRA-EYC 00235820

PATIENT
  Age: 50 Year
  Sex: Female
  Weight: 57.15 kg

DRUGS (1)
  1. CITALOPRAM [Suspect]
     Active Substance: CITALOPRAM HYDROBROMIDE
     Indication: Depressed mood
     Dosage: 10 MILLIGRAM, DAILY
     Route: 048
     Dates: start: 20190401, end: 20190801

REACTIONS (6)
  - Weight increased [Not Recovered/Not Resolved]
  - Drug withdrawal syndrome [Not Recovered/Not Resolved]
  - Fat tissue increased [Not Recovered/Not Resolved]
  - Hypoglycaemia [Unknown]
  - Decreased appetite [Unknown]
  - Palpitations [Unknown]

NARRATIVE: CASE EVENT DATE: 20190901
